FAERS Safety Report 5360129-0 (Version None)
Quarter: 2007Q2

REPORT INFORMATION
  Report Type: 
  Country: None (occurrence: None)
  Receive Date: 20070612
  Receipt Date: 20070531
  Transmission Date: 20071010
  Serious: Yes (Hospitalization)
  Sender: FDA-Public Use
  Company Number: 2004IM000944

PATIENT
  Age: 62 Year
  Sex: Female
  Weight: 80.2867 kg

DRUGS (21)
  1. INTERFERON GAMMA-1B [Suspect]
     Indication: IDIOPATHIC PULMONARY FIBROSIS
     Dosage: SEE IMAGE
     Route: 058
     Dates: start: 20031203, end: 20041110
  2. INTERFERON GAMMA-1B [Suspect]
     Indication: IDIOPATHIC PULMONARY FIBROSIS
     Dosage: SEE IMAGE
     Route: 058
     Dates: start: 20041117, end: 20041210
  3. INTERFERON GAMMA-1B [Suspect]
     Indication: IDIOPATHIC PULMONARY FIBROSIS
     Dosage: SEE IMAGE
     Route: 058
     Dates: start: 20050110, end: 20050509
  4. INTERFERON GAMMA-1B [Suspect]
     Indication: IDIOPATHIC PULMONARY FIBROSIS
     Dosage: SEE IMAGE
     Route: 058
     Dates: start: 20050513, end: 20070521
  5. PREDNISONE TAB [Suspect]
     Indication: IDIOPATHIC PULMONARY FIBROSIS
     Dosage: 10 MG, QD, ORAL
     Route: 048
     Dates: start: 20010503, end: 20070201
  6. INDAPAMIDE [Concomitant]
  7. LIPITOR [Concomitant]
  8. SYNTHROID [Concomitant]
  9. OMEPRAZOLE [Concomitant]
  10. PREMPRO [Concomitant]
  11. ALLEGRA [Concomitant]
  12. ZETIA [Concomitant]
  13. VITAMIN CAP [Concomitant]
  14. CALCIUM WITH VITAMIN D [Concomitant]
  15. GLUCOSAMINE W/CHONDROITIN SULFATES [Concomitant]
  16. FISH OIL [Concomitant]
  17. VICODIN [Concomitant]
  18. CEPHALEXIN [Concomitant]
  19. CELEBREX [Concomitant]
  20. CIPROFLOXACIN HCL [Concomitant]
  21. ARICEPT [Concomitant]

REACTIONS (8)
  - IMMUNOSUPPRESSION [None]
  - IMPAIRED HEALING [None]
  - MEDICAL DEVICE REMOVAL [None]
  - MUSCLE GRAFT [None]
  - POSTOPERATIVE WOUND COMPLICATION [None]
  - SKIN GRAFT [None]
  - SURGICAL PROCEDURE REPEATED [None]
  - WOUND INFECTION [None]
